FAERS Safety Report 6783052-3 (Version None)
Quarter: 2010Q2

REPORT INFORMATION
  Report Type: 
  Country: None (occurrence: None)
  Receive Date: 20100622
  Receipt Date: 20100610
  Transmission Date: 20101027
  Serious: Yes (Hospitalization, Other)
  Sender: FDA-Public Use
  Company Number: US-BAYER-201025654NA

PATIENT
  Age: 16 Year
  Sex: Female
  Weight: 64 kg

DRUGS (4)
  1. YASMIN [Suspect]
     Indication: MENSTRUATION IRREGULAR
     Route: 048
     Dates: start: 20030101, end: 20080101
  2. OCELLA [Suspect]
     Indication: MENSTRUATION IRREGULAR
     Route: 065
     Dates: start: 20030101, end: 20080101
  3. AZITHROMYCIN [Concomitant]
     Indication: DRUG USE FOR UNKNOWN INDICATION
     Route: 065
  4. HYDROCODONE [Concomitant]
     Indication: DRUG USE FOR UNKNOWN INDICATION
     Route: 065

REACTIONS (2)
  - GALLBLADDER DISORDER [None]
  - MYOCARDIAL INFARCTION [None]
